FAERS Safety Report 13576532 (Version 1)
Quarter: 2017Q2

REPORT INFORMATION
  Report Type: Report from Study
  Country: US (occurrence: US)
  Receive Date: 20170524
  Receipt Date: 20170524
  Transmission Date: 20170830
  Serious: Yes (Hospitalization, Other)
  Sender: FDA-Public Use
  Company Number: US-PFIZER INC-2017226408

PATIENT
  Age: 63 Year
  Sex: Male

DRUGS (4)
  1. BABY ASPIRIN [Suspect]
     Active Substance: ASPIRIN
     Dosage: UNK
  2. ENBREL [Suspect]
     Active Substance: ETANERCEPT
     Indication: RHEUMATOID ARTHRITIS
     Dosage: 50 MG, QWK ON TUESDAYS
     Route: 065
     Dates: start: 2015
  3. CELEBREX [Suspect]
     Active Substance: CELECOXIB
     Indication: ARTHRITIS
     Dosage: UNK
  4. PRISTIQ EXTENDED-RELEASE [Concomitant]
     Active Substance: DESVENLAFAXINE SUCCINATE
     Dosage: UNK

REACTIONS (5)
  - Coagulopathy [Unknown]
  - Ulcer haemorrhage [Recovered/Resolved]
  - Venous haemorrhage [Recovered/Resolved]
  - Apparent death [Unknown]
  - Loss of consciousness [Unknown]

NARRATIVE: CASE EVENT DATE: 20170502
